FAERS Safety Report 6189706-4 (Version None)
Quarter: 2009Q2

REPORT INFORMATION
  Report Type: 
  Country: None (occurrence: None)
  Receive Date: 20090514
  Receipt Date: 20090505
  Transmission Date: 20091009
  Serious: Yes (Other)
  Sender: FDA-Public Use
  Company Number: DE-ROCHE-576901

PATIENT
  Sex: Female

DRUGS (4)
  1. BONIVA [Suspect]
     Indication: OSTEOPOROSIS
     Route: 042
     Dates: start: 20060101, end: 20070101
  2. CLINDAMYCIN HCL [Concomitant]
  3. AMOXICILLIN [Concomitant]
  4. CIPROHEXAL [Concomitant]

REACTIONS (6)
  - GINGIVAL PAIN [None]
  - OSTEITIS [None]
  - OSTEONECROSIS [None]
  - PAIN IN JAW [None]
  - PERIODONTITIS [None]
  - TOOTHACHE [None]
